FAERS Safety Report 8965946 (Version 2)
Quarter: 2012Q4

REPORT INFORMATION
  Report Type: 
  Country: DE (occurrence: DE)
  Receive Date: 20121217
  Receipt Date: 20121226
  Transmission Date: 20130627
  Serious: Yes (Other)
  Sender: FDA-Public Use
  Company Number: GXKR2012DE003821

PATIENT
  Age: 39 Year
  Sex: Female

DRUGS (3)
  1. DICLOFENAC [Suspect]
     Indication: HEADACHE
     Dosage: in the last 3 to 4 weeks of pregnancy; exact dose unknown
     Route: 048
  2. VENLAFAXINE [Suspect]
     Indication: DEPRESSION
     Dosage: 150 mg, BID from 0.-37.GW
     Route: 048
     Dates: start: 20110504, end: 20120118
  3. HYPNOREX [Suspect]
     Indication: BIPOLAR I DISORDER
     Dosage: 400 mg, BID
     Route: 048
     Dates: start: 20110504, end: 20120118

REACTIONS (4)
  - Pre-eclampsia [Unknown]
  - Gestational diabetes [Unknown]
  - Polyhydramnios [Unknown]
  - Maternal exposure during pregnancy [Unknown]
